FAERS Safety Report 23164636 (Version 1)
Quarter: 2023Q4

REPORT INFORMATION
  Report Type: Spontaneous
  Country: US (occurrence: US)
  Receive Date: 20231109
  Receipt Date: 20231109
  Transmission Date: 20240110
  Serious: Yes (Other)
  Sender: FDA-Public Use
  Company Number: US-APOTEX-2023AP016322

PATIENT
  Age: 18 Year
  Sex: Female

DRUGS (6)
  1. IMATINIB [Suspect]
     Active Substance: IMATINIB
     Indication: Chronic graft versus host disease
     Dosage: UNK
     Route: 065
  2. IMATINIB [Suspect]
     Active Substance: IMATINIB
     Indication: Chronic graft versus host disease in lung
  3. RUXOLITINIB [Suspect]
     Active Substance: RUXOLITINIB
     Indication: Chronic graft versus host disease
     Dosage: 10 MILLIGRAM, BID
     Route: 065
  4. RUXOLITINIB [Suspect]
     Active Substance: RUXOLITINIB
     Indication: Chronic graft versus host disease in lung
  5. ALDESLEUKIN [Suspect]
     Active Substance: ALDESLEUKIN
     Indication: Chronic graft versus host disease
     Dosage: UNK (DOSE: 1 ? 10^6 IU/M2)
     Route: 058
  6. ALDESLEUKIN [Suspect]
     Active Substance: ALDESLEUKIN
     Indication: Chronic graft versus host disease in lung
     Dosage: UNK, QD (0.33 ? 10^6 IU/M2 PER DAY)
     Route: 058

REACTIONS (1)
  - Bronchopulmonary aspergillosis [Unknown]
